FAERS Safety Report 18637945 (Version 2)
Quarter: 2021Q1

REPORT INFORMATION
  Report Type: Report from Study
  Country: DE (occurrence: DE)
  Receive Date: 20201219
  Receipt Date: 20210319
  Transmission Date: 20210419
  Serious: Yes (Hospitalization, Other)
  Sender: FDA-Public Use
  Company Number: DE-SHIRE-DE201911715

PATIENT
  Age: 58 Year
  Sex: Female
  Weight: 49 kg

DRUGS (17)
  1. PARATHYROID HORMONE [Suspect]
     Active Substance: PARATHYROID HORMONE
     Indication: HYPOPARATHYROIDISM
     Dosage: 75 GRAM, QD
     Route: 058
     Dates: start: 20181001
  2. PARATHYROID HORMONE [Suspect]
     Active Substance: PARATHYROID HORMONE
     Indication: HYPOPARATHYROIDISM
     Dosage: 75 GRAM, QD
     Route: 058
     Dates: start: 20181001
  3. PARATHYROID HORMONE [Suspect]
     Active Substance: PARATHYROID HORMONE
     Dosage: 75 MICROGRAM, QD
     Route: 058
     Dates: start: 20181001
  4. CELLCEPT [Concomitant]
     Active Substance: MYCOPHENOLATE MOFETIL\MYCOPHENOLATE MOFETIL HYDROCHLORIDE
     Indication: TRANSPLANT
     Dosage: UNK, QD
     Route: 048
  5. DEKRISTOL [Concomitant]
     Active Substance: CHOLECALCIFEROL
     Indication: HYPOPARATHYROIDISM
     Dosage: UNK
  6. DECOSTRIOL [Concomitant]
     Active Substance: CALCITRIOL
     Indication: HYPOPARATHYROIDISM
     Dosage: 0.25 MICROGRAM, QD
     Route: 048
  7. PARATHYROID HORMONE [Suspect]
     Active Substance: PARATHYROID HORMONE
     Indication: HYPOPARATHYROIDISM
     Dosage: 75 GRAM, QD
     Route: 058
     Dates: start: 20181001
  8. CALCIUM [Concomitant]
     Active Substance: CALCIUM
     Indication: HYPOPARATHYROIDISM
     Dosage: UNK
  9. 1?ALPHA [Concomitant]
     Active Substance: ALFACALCIDOL
     Indication: HYPOPARATHYROIDISM
     Dosage: UNK
  10. CELLCEPT [Concomitant]
     Active Substance: MYCOPHENOLATE MOFETIL\MYCOPHENOLATE MOFETIL HYDROCHLORIDE
     Indication: RENAL TRANSPLANT
  11. PARATHYROID HORMONE [Suspect]
     Active Substance: PARATHYROID HORMONE
     Dosage: 75 MICROGRAM, QD
     Route: 058
     Dates: start: 20181001
  12. PROGRAF [Concomitant]
     Active Substance: TACROLIMUS
     Indication: TRANSPLANT
     Dosage: UNK UNK, QD
     Route: 048
  13. PARATHYROID HORMONE [Suspect]
     Active Substance: PARATHYROID HORMONE
     Dosage: 75 MICROGRAM, QD
     Route: 058
     Dates: start: 20181001
  14. L?THYROXIN [Concomitant]
     Active Substance: LEVOTHYROXINE SODIUM
     Indication: THYROIDECTOMY
     Dosage: 100 MICROGRAM, QD
     Route: 048
  15. PROGRAF [Concomitant]
     Active Substance: TACROLIMUS
     Indication: RENAL TRANSPLANT
  16. METOPROLOL. [Concomitant]
     Active Substance: METOPROLOL
     Indication: HYPERTENSION
     Dosage: UNK
     Route: 048
  17. RENVELA [Concomitant]
     Active Substance: SEVELAMER CARBONATE
     Indication: RENAL TRANSPLANT
     Dosage: UNK UNK, QD
     Route: 048

REACTIONS (8)
  - Weight decreased [Recovered/Resolved]
  - Gout [Recovered/Resolved]
  - Cardiac failure [Unknown]
  - Hypoaesthesia [Not Recovered/Not Resolved]
  - Influenza [Recovered/Resolved]
  - C-reactive protein increased [Not Recovered/Not Resolved]
  - Shunt stenosis [Recovered/Resolved]
  - Urinary tract infection [Not Recovered/Not Resolved]

NARRATIVE: CASE EVENT DATE: 20190307
